FAERS Safety Report 4335911-9 (Version None)
Quarter: 2004Q2

REPORT INFORMATION
  Report Type: 
  Country: None (occurrence: None)
  Receive Date: 20040408
  Receipt Date: 20040402
  Transmission Date: 20050107
  Serious: Yes (Disabling)
  Sender: FDA-Public Use
  Company Number: 04-04-0497

PATIENT
  Age: 41 Year
  Sex: Female
  Weight: 73 kg

DRUGS (5)
  1. TRAMADOL HCL [Suspect]
     Indication: SCIATICA
     Dosage: 100MG QDS ORAL
     Route: 048
     Dates: start: 20031201, end: 20031201
  2. OMEPRAZOLE [Concomitant]
  3. NARATRIPTAN PRN [Concomitant]
  4. FLUOXETINE [Concomitant]
  5. PARAMAX RN [Concomitant]

REACTIONS (1)
  - HYPOMANIA [None]
